FAERS Safety Report 6524468-X (Version None)
Quarter: 2010Q1

REPORT INFORMATION
  Report Type: 
  Country: None (occurrence: None)
  Receive Date: 20100104
  Receipt Date: 20091201
  Transmission Date: 20100710
  Serious: No
  Sender: FDA-Public Use
  Company Number: US-BAYER-200917395BCC

PATIENT
  Age: 56 Year
  Sex: Female
  Weight: 91 kg

DRUGS (1)
  1. ALEVE [Suspect]
     Indication: MUSCULOSKELETAL DISCOMFORT
     Dosage: TOTAL DAILY DOSE: 440 MG  UNIT DOSE: 220 MG
     Route: 048
     Dates: start: 20091201

REACTIONS (1)
  - MUSCULOSKELETAL DISCOMFORT [None]
